FAERS Safety Report 24553275 (Version 1)
Quarter: 2024Q4

REPORT INFORMATION
  Report Type: Spontaneous
  Country: US (occurrence: US)
  Receive Date: 20241028
  Receipt Date: 20241028
  Transmission Date: 20250115
  Serious: No
  Sender: ALEXION PHARMACEUTICALS
  Company Number: US-AstraZeneca-CH-00728247A

PATIENT

DRUGS (2)
  1. AIRSUPRA [Suspect]
     Active Substance: ALBUTEROL SULFATE\BUDESONIDE
     Indication: Asthma
     Dosage: 90 MILLILITRE PER KILOGRAM, PRN
  2. DEVICE [Suspect]
     Active Substance: DEVICE
     Indication: Asthma

REACTIONS (1)
  - Stomatitis [Recovered/Resolved]
